FAERS Safety Report 21857771 (Version 1)
Quarter: 2023Q1

REPORT INFORMATION
  Report Type: Spontaneous
  Country: CA (occurrence: CA)
  Receive Date: 20230113
  Receipt Date: 20230113
  Transmission Date: 20230418
  Serious: Yes (Hospitalization, Disabling, Congenital Anomaly, Other)
  Sender: FDA-Public Use
  Company Number: None

PATIENT

DRUGS (129)
  1. PERIOGARD [Suspect]
     Active Substance: CHLORHEXIDINE GLUCONATE
     Indication: Product used for unknown indication
     Dosage: UNK
     Route: 002
  2. SIMPONI [Suspect]
     Active Substance: GOLIMUMAB
     Indication: Rheumatoid arthritis
     Dosage: UNK
     Route: 058
  3. SIMPONI [Suspect]
     Active Substance: GOLIMUMAB
     Indication: Product used for unknown indication
     Dosage: 50.0 MILLIGRAM, SOLUTION SUBCUTANEOUS
     Route: 058
  4. SIMPONI [Suspect]
     Active Substance: GOLIMUMAB
     Dosage: UNK
  5. SIMPONI [Suspect]
     Active Substance: GOLIMUMAB
     Dosage: 50.0 MILLIGRAM
  6. ARAVA [Suspect]
     Active Substance: LEFLUNOMIDE
     Indication: Rheumatoid arthritis
     Dosage: UNK
  7. ARAVA [Suspect]
     Active Substance: LEFLUNOMIDE
     Indication: Product used for unknown indication
     Dosage: 20 MILLIGRAM, 1 EVERY 24 HOURS
     Route: 048
  8. ARAVA [Suspect]
     Active Substance: LEFLUNOMIDE
     Dosage: 20.0 MILLIGRAM
  9. GOLD SODIUM THIOMALATE [Suspect]
     Active Substance: GOLD SODIUM THIOMALATE
     Indication: Product used for unknown indication
     Dosage: UNK
     Route: 048
  10. GOLD SODIUM THIOMALATE [Suspect]
     Active Substance: GOLD SODIUM THIOMALATE
     Dosage: UNK
  11. HYDROXYCHLOROQUINE SULFATE [Suspect]
     Active Substance: HYDROXYCHLOROQUINE SULFATE
     Indication: Rheumatoid arthritis
     Dosage: UNK
  12. HYDROXYCHLOROQUINE SULFATE [Suspect]
     Active Substance: HYDROXYCHLOROQUINE SULFATE
     Dosage: UNK
     Route: 048
  13. MYOCHRYSINE [Suspect]
     Active Substance: GOLD SODIUM THIOMALATE
     Indication: Rheumatoid arthritis
     Dosage: (FORMULATION: SOLUTION INTRAMUSCULAR)
     Route: 030
  14. FOLIC ACID [Suspect]
     Active Substance: FOLIC ACID
     Indication: Product used for unknown indication
     Dosage: UNK
  15. LEFLUNOMIDE [Suspect]
     Active Substance: LEFLUNOMIDE
     Indication: Rheumatoid arthritis
     Dosage: 10.0 MILLIGRAM
  16. LEFLUNOMIDE [Suspect]
     Active Substance: LEFLUNOMIDE
     Indication: Product used for unknown indication
     Dosage: 20.0 MILLIGRAM
  17. LEFLUNOMIDE [Suspect]
     Active Substance: LEFLUNOMIDE
     Dosage: 10.0 MILLIGRAM
     Route: 048
  18. FOSAMAX [Suspect]
     Active Substance: ALENDRONATE SODIUM
     Indication: Product used for unknown indication
     Dosage: UNK
  19. FOSAMAX [Suspect]
     Active Substance: ALENDRONATE SODIUM
     Dosage: UNK
  20. KEVZARA [Suspect]
     Active Substance: SARILUMAB
     Indication: Product used for unknown indication
     Dosage: UNK
  21. KEVZARA [Suspect]
     Active Substance: SARILUMAB
     Dosage: UNK
  22. STELARA [Suspect]
     Active Substance: USTEKINUMAB
     Indication: Rheumatoid arthritis
     Dosage: (FORMULATION: SOLUTION SUBCUTANEOUS)
     Route: 058
  23. TOFACITINIB CITRATE [Suspect]
     Active Substance: TOFACITINIB CITRATE
     Indication: Rheumatoid arthritis
     Dosage: 5.0 MILLIGRAM, 2 EVERY 1 DAYS
     Route: 048
  24. TOFACITINIB CITRATE [Suspect]
     Active Substance: TOFACITINIB CITRATE
     Dosage: 10 MILLIGRAM, 1 EVERY 24 HOURS
     Route: 048
  25. TOFACITINIB CITRATE [Suspect]
     Active Substance: TOFACITINIB CITRATE
     Dosage: 5.0 MILLIGRAM, 1 EVERY 12 HOURS
  26. SULFASALAZINE [Suspect]
     Active Substance: SULFASALAZINE
     Indication: Rheumatoid arthritis
     Dosage: 1.0 MILLIGRAM
     Route: 048
  27. SULFASALAZINE [Suspect]
     Active Substance: SULFASALAZINE
     Dosage: NOT SPECIFIED
  28. SULFASALAZINE [Suspect]
     Active Substance: SULFASALAZINE
     Dosage: UNK
     Route: 058
  29. FLUMETHASONE PIVALATE [Suspect]
     Active Substance: FLUMETHASONE PIVALATE
     Indication: Product used for unknown indication
     Dosage: UNK
  30. CERTOLIZUMAB PEGOL [Suspect]
     Active Substance: CERTOLIZUMAB PEGOL
     Indication: Product used for unknown indication
     Dosage: 200.0 MILLIGRAM, 1 EVERY 2 WEEKS
     Route: 058
  31. CETIRIZINE [Suspect]
     Active Substance: CETIRIZINE HYDROCHLORIDE
     Indication: Product used for unknown indication
     Dosage: UNK
  32. ORENCIA [Suspect]
     Active Substance: ABATACEPT
     Indication: Rheumatoid arthritis
     Dosage: 750.0 MILLIGRAM
     Route: 042
  33. ORENCIA [Suspect]
     Active Substance: ABATACEPT
     Indication: Product used for unknown indication
     Dosage: UNK
  34. ORENCIA [Suspect]
     Active Substance: ABATACEPT
     Dosage: 125.0 MILLIGRAM, 1 EVERY 1 WEEKS
     Route: 058
  35. ORENCIA [Suspect]
     Active Substance: ABATACEPT
     Dosage: 750.0 MILLIGRAM
  36. ORENCIA [Suspect]
     Active Substance: ABATACEPT
     Dosage: 250.0 MILLIGRAM
  37. ORENCIA [Suspect]
     Active Substance: ABATACEPT
     Dosage: UNK
     Route: 042
  38. ORENCIA [Suspect]
     Active Substance: ABATACEPT
     Dosage: 160.0 MILLIGRAM
  39. ACETAMINOPHEN [Suspect]
     Active Substance: ACETAMINOPHEN
     Indication: Product used for unknown indication
     Dosage: UNK
  40. CORTISONE ACETATE [Suspect]
     Active Substance: CORTISONE ACETATE
     Indication: Product used for unknown indication
     Dosage: 25 MILLIGRAM
  41. HUMIRA [Suspect]
     Active Substance: ADALIMUMAB
     Indication: Rheumatoid arthritis
     Dosage: UNK
     Route: 058
  42. HUMIRA [Suspect]
     Active Substance: ADALIMUMAB
     Indication: Product used for unknown indication
     Dosage: 40.0 MILLIGRAM, 1 EVERY 2 WEEKS
     Route: 058
  43. HUMIRA [Suspect]
     Active Substance: ADALIMUMAB
     Dosage: 40 MILLIGRAM, SOLUTION SUBCUTANEOUS
     Route: 058
  44. HUMIRA [Suspect]
     Active Substance: ADALIMUMAB
     Dosage: UNK
  45. HUMIRA [Suspect]
     Active Substance: ADALIMUMAB
     Dosage: 40 MILLIGRAM
     Route: 058
  46. TOCILIZUMAB [Suspect]
     Active Substance: TOCILIZUMAB
     Indication: Product used for unknown indication
     Dosage: 160 MILLIGRAM
  47. TOCILIZUMAB [Suspect]
     Active Substance: TOCILIZUMAB
     Dosage: 8 MILLIGRAM/KILOGRAM
     Route: 042
  48. TOCILIZUMAB [Suspect]
     Active Substance: TOCILIZUMAB
     Dosage: 162 MILLIGRAM
     Route: 058
  49. TRAMADOL HYDROCHLORIDE [Suspect]
     Active Substance: TRAMADOL HYDROCHLORIDE
     Indication: Product used for unknown indication
     Dosage: UNK
  50. PHTHALYLSULFATHIAZOLE [Suspect]
     Active Substance: PHTHALYLSULFATHIAZOLE
     Indication: Product used for unknown indication
     Dosage: UNK
     Route: 058
  51. TRIMETHOPRIM [Suspect]
     Active Substance: TRIMETHOPRIM
     Indication: Product used for unknown indication
     Dosage: UNK
  52. DICLOFENAC SODIUM [Suspect]
     Active Substance: DICLOFENAC SODIUM
     Indication: Product used for unknown indication
     Dosage: UNK
  53. HYDROCORTISONE ACETATE [Suspect]
     Active Substance: HYDROCORTISONE ACETATE
     Indication: Product used for unknown indication
     Dosage: UNK
  54. PSEUDOEPHEDRINE HYDROCHLORIDE [Suspect]
     Active Substance: PSEUDOEPHEDRINE HYDROCHLORIDE
     Indication: Product used for unknown indication
     Dosage: UNK
  55. GOLD [Suspect]
     Active Substance: GOLD
     Indication: Product used for unknown indication
     Dosage: UNK
  56. PREDNISONE [Suspect]
     Active Substance: PREDNISONE
     Indication: Rheumatoid arthritis
     Dosage: 5.0 MILLIGRAM
     Route: 048
  57. PREDNISONE [Suspect]
     Active Substance: PREDNISONE
     Dosage: UNK
     Route: 048
  58. PREDNISONE [Suspect]
     Active Substance: PREDNISONE
     Dosage: 1 EVERY 24 HOURS
     Route: 048
  59. HYDROXYCHLOROQUINE [Suspect]
     Active Substance: HYDROXYCHLOROQUINE
     Indication: Rheumatoid arthritis
     Dosage: UNK 1 EVERY 24 HOURS
  60. HYDROXYCHLOROQUINE [Suspect]
     Active Substance: HYDROXYCHLOROQUINE
     Dosage: UNK
  61. HYDROXYCHLOROQUINE [Suspect]
     Active Substance: HYDROXYCHLOROQUINE
     Dosage: 200.0 MILLIGRAM
  62. HYDROXYCHLOROQUINE [Suspect]
     Active Substance: HYDROXYCHLOROQUINE
     Dosage: 400.0 MILLIGRAM, 1 EVERY 24 HOURS
     Route: 048
  63. XELJANZ [Suspect]
     Active Substance: TOFACITINIB CITRATE
     Indication: Rheumatoid arthritis
     Dosage: 5 MILLIGRAM, 2 EVERY 1 DAYS (NOT SPECIFIED)
  64. XELJANZ [Suspect]
     Active Substance: TOFACITINIB CITRATE
     Indication: Product used for unknown indication
     Dosage: 5 MILLIGRAM, 1 EVERY 12 HOURS
     Route: 048
  65. XELJANZ [Suspect]
     Active Substance: TOFACITINIB CITRATE
     Dosage: UNK
  66. XELJANZ [Suspect]
     Active Substance: TOFACITINIB CITRATE
     Dosage: 5.0 MILLIGRAM
  67. XELJANZ [Suspect]
     Active Substance: TOFACITINIB CITRATE
     Dosage: 5 MILLIGRAM
  68. XELJANZ [Suspect]
     Active Substance: TOFACITINIB CITRATE
     Dosage: 5.0 MILLIGRAM
     Route: 048
  69. AZATHIOPRINE [Suspect]
     Active Substance: AZATHIOPRINE
     Indication: Product used for unknown indication
     Dosage: UNK
  70. PREDNISONE [Suspect]
     Active Substance: PREDNISONE
     Indication: Rheumatoid arthritis
     Dosage: 10 MILLIGRAM
  71. PREDNISONE [Suspect]
     Active Substance: PREDNISONE
     Indication: Product used for unknown indication
     Dosage: 20.0 MILLIGRAM, 1 EVERY 24 HOURS (NOT SPECIFIED)
     Route: 048
  72. PREDNISONE [Suspect]
     Active Substance: PREDNISONE
     Dosage: 5.0 MILLIGRAM
  73. PREDNISONE [Suspect]
     Active Substance: PREDNISONE
     Dosage: 50.0 MILLIGRAM, 1 EVERY 24 HOURS
     Route: 048
  74. PREDNISONE [Suspect]
     Active Substance: PREDNISONE
     Dosage: 1 EVERY 24 HOURS
  75. METHOTREXATE [Suspect]
     Active Substance: METHOTREXATE
     Indication: Rheumatoid arthritis
     Dosage: 15.0 MILLIGRAM, 1 EVERY 1 WEEKS
     Route: 058
  76. METHOTREXATE [Suspect]
     Active Substance: METHOTREXATE
     Dosage: 15.0 MILLIGRAM, 1 EVERY 1 WEEKS
     Route: 048
  77. METHOTREXATE [Suspect]
     Active Substance: METHOTREXATE
     Dosage: 25 MILLIGRAM,  1 EVERY 1 WEEKS
  78. METHOTREXATE [Suspect]
     Active Substance: METHOTREXATE
     Dosage: NOT SPECIFIED
     Route: 048
  79. METHOTREXATE [Suspect]
     Active Substance: METHOTREXATE
     Dosage: 20 MILLIGRAM,  1 EVERY 1 WEEKS
     Route: 058
  80. METHOTREXATE [Suspect]
     Active Substance: METHOTREXATE
     Dosage: UNK
  81. METHOTREXATE [Suspect]
     Active Substance: METHOTREXATE
     Dosage: 25 MILLIGRAM,  1 EVERY 1 WEEKS
     Route: 058
  82. ACTEMRA [Suspect]
     Active Substance: TOCILIZUMAB
     Indication: Rheumatoid arthritis
     Dosage: 8 MILLIGRAM/KILOGRAM
     Route: 042
  83. ACTEMRA [Suspect]
     Active Substance: TOCILIZUMAB
     Indication: Product used for unknown indication
     Dosage: 162.0 MILLIGRAM 1 EVERY 2 WEEKS
  84. ACTEMRA [Suspect]
     Active Substance: TOCILIZUMAB
     Dosage: 8 MICROGRAM PER KILOGRAM
  85. ACTEMRA [Suspect]
     Active Substance: TOCILIZUMAB
     Dosage: 8 MILLIGRAM/KILOGRAM
     Route: 042
  86. ACTEMRA [Suspect]
     Active Substance: TOCILIZUMAB
     Dosage: 8 MILLIGRAM/KILOGRAM
     Route: 058
  87. SULFASALAZINE [Suspect]
     Active Substance: SULFASALAZINE
     Indication: Rheumatoid arthritis
     Dosage: UNK
  88. METHYLPREDNISOLONE [Suspect]
     Active Substance: METHYLPREDNISOLONE
     Indication: Product used for unknown indication
     Dosage: 80.0 MILLIGRAM
  89. LEFLUNOMIDE [Suspect]
     Active Substance: LEFLUNOMIDE
     Indication: Rheumatoid arthritis
     Dosage: NOT SPECIFIED
  90. LEFLUNOMIDE [Suspect]
     Active Substance: LEFLUNOMIDE
     Indication: Product used for unknown indication
     Dosage: 10 MILLIGRAM, 1 EVERY 24 HOURS
     Route: 048
  91. LEFLUNOMIDE [Suspect]
     Active Substance: LEFLUNOMIDE
     Dosage: 20 MILLIGRAM
  92. MINOCYCLINE HYDROCHLORIDE [Suspect]
     Active Substance: MINOCYCLINE HYDROCHLORIDE
     Indication: Rheumatoid arthritis
     Dosage: UNK
  93. MINOCYCLINE HYDROCHLORIDE [Suspect]
     Active Substance: MINOCYCLINE HYDROCHLORIDE
     Indication: Product used for unknown indication
     Dosage: UNK
  94. RITUXIMAB [Suspect]
     Active Substance: RITUXIMAB
     Indication: Rheumatoid arthritis
     Dosage: 1000 MILLIGRAM, 2 EVERY 1 DAYS
  95. RITUXIMAB [Suspect]
     Active Substance: RITUXIMAB
     Indication: Product used for unknown indication
     Dosage: 1000 MILLIGRAM
     Route: 042
  96. RITUXIMAB [Suspect]
     Active Substance: RITUXIMAB
     Dosage: 1000 MILLIGRAM, 2 EVERY 1 DAYS
     Route: 042
  97. RITUXIMAB [Suspect]
     Active Substance: RITUXIMAB
     Dosage: 1000 MILLIGRAM, 2 EVERY 1 DAYS
     Route: 042
  98. RITUXIMAB [Suspect]
     Active Substance: RITUXIMAB
     Dosage: 1 GRAM, 1 EVERY 12 HOURS
     Route: 042
  99. RITUXIMAB [Suspect]
     Active Substance: RITUXIMAB
     Dosage: UNK
     Route: 042
  100. RITUXIMAB [Suspect]
     Active Substance: RITUXIMAB
     Dosage: 2000.0 MILLIGRAM, 1 EVERY 24 HOURS
     Route: 042
  101. RITUXIMAB [Suspect]
     Active Substance: RITUXIMAB
     Dosage: 1.0 GRAM, 2 EVERY 1 DAYS
     Route: 042
  102. RITUXIMAB [Suspect]
     Active Substance: RITUXIMAB
     Dosage: 1 GRAM, 1 EVERY 12 HOURS
  103. RITUXIMAB [Suspect]
     Active Substance: RITUXIMAB
     Dosage: 2000.0 MILLIGRAM, 1 EVERY 24 HOURS
     Route: 042
  104. RITUXIMAB [Suspect]
     Active Substance: RITUXIMAB
     Dosage: 2.0 GRAM, 1 EVERY 24 HOURS
     Route: 042
  105. DESOXIMETASONE [Suspect]
     Active Substance: DESOXIMETASONE
     Indication: Rheumatoid arthritis
     Dosage: DOSAGE FORM: NOT SPECIFIED
     Route: 048
  106. DESOXIMETASONE [Suspect]
     Active Substance: DESOXIMETASONE
     Indication: Product used for unknown indication
     Dosage: UNK
  107. DESOXIMETASONE [Suspect]
     Active Substance: DESOXIMETASONE
     Dosage: UNK
     Route: 058
  108. COSENTYX [Suspect]
     Active Substance: SECUKINUMAB
     Indication: Product used for unknown indication
     Dosage: UNK
  109. APREMILAST [Suspect]
     Active Substance: APREMILAST
     Indication: Rheumatoid arthritis
     Dosage: UNK
  110. ALENDRONATE SODIUM [Suspect]
     Active Substance: ALENDRONATE SODIUM
     Indication: Product used for unknown indication
  111. ENBREL [Suspect]
     Active Substance: ETANERCEPT
     Indication: Rheumatoid arthritis
     Dosage: 50 MILLIGRAM, 1 EVERY 1 WEEKS
     Route: 058
  112. ENBREL [Suspect]
     Active Substance: ETANERCEPT
     Dosage: 50.0 MILLIGRAM
     Route: 058
  113. ENBREL [Suspect]
     Active Substance: ETANERCEPT
     Dosage: UNK
  114. ENBREL [Suspect]
     Active Substance: ETANERCEPT
     Dosage: 50.0 MILLIGRAM
     Route: 058
  115. ENBREL [Suspect]
     Active Substance: ETANERCEPT
     Dosage: 10 MILLIGRAM, 1 EVERY 1 WEEKS
  116. ENBREL [Suspect]
     Active Substance: ETANERCEPT
     Dosage: 40.0 MILLIGRAM
     Route: 058
  117. CIMZIA [Suspect]
     Active Substance: CERTOLIZUMAB PEGOL
     Indication: Rheumatoid arthritis
     Dosage: UNK
     Route: 058
  118. REMICADE [Suspect]
     Active Substance: INFLIXIMAB
     Indication: Rheumatoid arthritis
     Dosage: UNK
     Route: 058
  119. REMICADE [Suspect]
     Active Substance: INFLIXIMAB
     Indication: Product used for unknown indication
     Dosage: 500.0 MILLIGRAM, 1 EVERY 24 HOURS
     Route: 042
  120. REMICADE [Suspect]
     Active Substance: INFLIXIMAB
     Dosage: 500 MILLIGRAM
     Route: 042
  121. REMICADE [Suspect]
     Active Substance: INFLIXIMAB
     Dosage: UNK
  122. REMICADE [Suspect]
     Active Substance: INFLIXIMAB
     Dosage: 500.0 MILLIGRAM (POWDER FOR SOLUTION INTRAVENOUS)
     Route: 042
  123. SIRUKUMAB [Suspect]
     Active Substance: SIRUKUMAB
     Indication: Product used for unknown indication
     Dosage: UNK
  124. INFLIXIMAB [Suspect]
     Active Substance: INFLIXIMAB
     Indication: Rheumatoid arthritis
     Dosage: 400.0 MILLIGRAM
     Route: 042
  125. INFLIXIMAB [Suspect]
     Active Substance: INFLIXIMAB
     Dosage: 400.0 MILLIGRAM, NOT SPECIFIED
     Route: 042
  126. ETANERCEPT [Suspect]
     Active Substance: ETANERCEPT
     Indication: Rheumatoid arthritis
     Dosage: UNK
  127. HYDROXYCHLOROQUINE SULFATE [Concomitant]
     Active Substance: HYDROXYCHLOROQUINE SULFATE
     Indication: Product used for unknown indication
     Dosage: UNK
  128. DESOGESTREL;ESTRADIOL [Concomitant]
     Indication: Product used for unknown indication
     Dosage: UNK
  129. NAPROXEN [Concomitant]
     Active Substance: NAPROXEN
     Indication: Product used for unknown indication
     Dosage: 500.0 MILLIGRAM, 1 EVERY 24 HOURS (NOT SPECIFIED)

REACTIONS (86)
  - Abdominal distension [Not Recovered/Not Resolved]
  - Therapeutic product effect decreased [Not Recovered/Not Resolved]
  - Coeliac disease [Not Recovered/Not Resolved]
  - Hypertension [Not Recovered/Not Resolved]
  - Psoriatic arthropathy [Not Recovered/Not Resolved]
  - Infusion related reaction [Not Recovered/Not Resolved]
  - Headache [Not Recovered/Not Resolved]
  - Injection site reaction [Not Recovered/Not Resolved]
  - Product use in unapproved indication [Not Recovered/Not Resolved]
  - Hypersensitivity [Not Recovered/Not Resolved]
  - Systemic lupus erythematosus [Not Recovered/Not Resolved]
  - Blood cholesterol increased [Not Recovered/Not Resolved]
  - Stomatitis [Not Recovered/Not Resolved]
  - Hepatitis [Not Recovered/Not Resolved]
  - Insomnia [Not Recovered/Not Resolved]
  - Pain [Not Recovered/Not Resolved]
  - Gait inability [Not Recovered/Not Resolved]
  - Pain in extremity [Not Recovered/Not Resolved]
  - Vomiting [Not Recovered/Not Resolved]
  - Pericarditis [Not Recovered/Not Resolved]
  - Sleep disorder [Not Recovered/Not Resolved]
  - Neck pain [Not Recovered/Not Resolved]
  - Contraindicated product administered [Not Recovered/Not Resolved]
  - Pemphigus [Not Recovered/Not Resolved]
  - C-reactive protein increased [Not Recovered/Not Resolved]
  - Finger deformity [Not Recovered/Not Resolved]
  - Onychomadesis [Not Recovered/Not Resolved]
  - Loss of personal independence in daily activities [Not Recovered/Not Resolved]
  - Condition aggravated [Not Recovered/Not Resolved]
  - Ill-defined disorder [Not Recovered/Not Resolved]
  - Contusion [Not Recovered/Not Resolved]
  - Fatigue [Not Recovered/Not Resolved]
  - Wound [Not Recovered/Not Resolved]
  - Onychomycosis [Not Recovered/Not Resolved]
  - Inflammation [Not Recovered/Not Resolved]
  - Helicobacter infection [Not Recovered/Not Resolved]
  - Anti-cyclic citrullinated peptide antibody positive [Not Recovered/Not Resolved]
  - Dyspnoea [Not Recovered/Not Resolved]
  - Arthropathy [Not Recovered/Not Resolved]
  - Confusional state [Not Recovered/Not Resolved]
  - Drug-induced liver injury [Not Recovered/Not Resolved]
  - Rheumatic fever [Not Recovered/Not Resolved]
  - Grip strength decreased [Not Recovered/Not Resolved]
  - Impaired healing [Not Recovered/Not Resolved]
  - Abdominal discomfort [Not Recovered/Not Resolved]
  - Folliculitis [Not Recovered/Not Resolved]
  - Back injury [Not Recovered/Not Resolved]
  - Synovitis [Not Recovered/Not Resolved]
  - Liver function test increased [Not Recovered/Not Resolved]
  - Mobility decreased [Not Recovered/Not Resolved]
  - Fall [Not Recovered/Not Resolved]
  - Musculoskeletal stiffness [Not Recovered/Not Resolved]
  - Blister [Not Recovered/Not Resolved]
  - Alopecia [Not Recovered/Not Resolved]
  - Drug intolerance [Not Recovered/Not Resolved]
  - Glossodynia [Not Recovered/Not Resolved]
  - Overdose [Unknown]
  - Hand deformity [Not Recovered/Not Resolved]
  - Swelling [Not Recovered/Not Resolved]
  - Duodenal ulcer perforation [Not Recovered/Not Resolved]
  - Maternal exposure during pregnancy [Not Recovered/Not Resolved]
  - Rash [Not Recovered/Not Resolved]
  - Dyspepsia [Not Recovered/Not Resolved]
  - Malaise [Not Recovered/Not Resolved]
  - Nail disorder [Not Recovered/Not Resolved]
  - Type 2 diabetes mellitus [Not Recovered/Not Resolved]
  - Therapeutic product effect incomplete [Not Recovered/Not Resolved]
  - Lower respiratory tract infection [Not Recovered/Not Resolved]
  - Product label confusion [Not Recovered/Not Resolved]
  - Pruritus [Not Recovered/Not Resolved]
  - Gastric disorder [Not Recovered/Not Resolved]
  - Muscular weakness [Not Recovered/Not Resolved]
  - Nausea [Not Recovered/Not Resolved]
  - Joint swelling [Not Recovered/Not Resolved]
  - Arthralgia [Not Recovered/Not Resolved]
  - Treatment failure [Not Recovered/Not Resolved]
  - C-reactive protein abnormal [Not Recovered/Not Resolved]
  - Injury [Not Recovered/Not Resolved]
  - Product use issue [Not Recovered/Not Resolved]
  - Hepatic enzyme increased [Not Recovered/Not Resolved]
  - Drug hypersensitivity [Not Recovered/Not Resolved]
  - Pneumonia [Not Recovered/Not Resolved]
  - Rheumatoid arthritis [Not Recovered/Not Resolved]
  - General physical health deterioration [Not Recovered/Not Resolved]
  - Exposure during pregnancy [Not Recovered/Not Resolved]
  - Drug ineffective [Not Recovered/Not Resolved]
